FAERS Safety Report 4923088-8 (Version None)
Quarter: 2006Q2

REPORT INFORMATION
  Report Type: 
  Country: None (occurrence: None)
  Receive Date: 20060113
  Receipt Date: 20051024
  Transmission Date: 20061013
  Serious: Yes (Hospitalization, Other)
  Sender: FDA-Public Use
  Company Number: HQWYE092526OCT04

PATIENT
  Age: 58 Year
  Sex: Female
  Weight: 54.48 kg

DRUGS (7)
  1. PREMPRO [Suspect]
  2. ESTRATEST [Suspect]
  3. MEDROXYPROGESTERONE [Suspect]
  4. PREMARIN [Suspect]
  5. PROVERA [Suspect]
  6. VIVELLE [Suspect]
  7. SYNTHROID [Concomitant]

REACTIONS (1)
  - BREAST CANCER [None]
